FAERS Safety Report 8781263 (Version 3)
Quarter: 2012Q4

REPORT INFORMATION
  Report Type: 
  Country: JP (occurrence: JP)
  Receive Date: 20120913
  Receipt Date: 20121126
  Transmission Date: 20130627
  Serious: Yes (Death, Hospitalization, Other)
  Sender: FDA-Public Use
  Company Number: PHHY2012JP079226

PATIENT
  Age: 62 Year
  Sex: Male

DRUGS (2)
  1. ZOMETA [Suspect]
     Indication: METASTASES TO BONE
     Dosage: 4 mg per administation
     Route: 041
  2. CHEMOTHERAPEUTICS [Concomitant]
     Dosage: UNK UKN, UNK
     Route: 065

REACTIONS (14)
  - Velopharyngeal incompetence [Fatal]
  - Pneumonia aspiration [Fatal]
  - Dysphagia [Fatal]
  - Dysarthria [Fatal]
  - Osteonecrosis of jaw [Not Recovered/Not Resolved]
  - Exposed bone in jaw [Unknown]
  - Osteitis [Unknown]
  - Pain in jaw [Unknown]
  - Purulent discharge [Unknown]
  - Tooth loss [Unknown]
  - Hypophagia [Unknown]
  - Mastication disorder [Unknown]
  - Quality of life decreased [Unknown]
  - Neutrophil count decreased [Unknown]
